FAERS Safety Report 4938311-3 (Version None)
Quarter: 2006Q1

REPORT INFORMATION
  Report Type: 
  Country: None (occurrence: None)
  Receive Date: 20060309
  Receipt Date: 20060227
  Transmission Date: 20060701
  Serious: Yes (Life-Threatening, Hospitalization)
  Sender: FDA-Public Use
  Company Number: GB-GLAXOSMITHKLINE-B0413781A

PATIENT
  Age: 49 Year
  Sex: Female

DRUGS (2)
  1. AUGMENTIN '125' [Suspect]
     Indication: PELVIC INFECTION
     Route: 048
     Dates: start: 20051212, end: 20051219
  2. ACETAMINOPHEN [Concomitant]
     Route: 048

REACTIONS (6)
  - CHEST DISCOMFORT [None]
  - DYSPNOEA [None]
  - GASTROOESOPHAGEAL REFLUX DISEASE [None]
  - PULMONARY OEDEMA [None]
  - SWELLING FACE [None]
  - THROAT TIGHTNESS [None]
